FAERS Safety Report 11776692 (Version 1)
Quarter: 2015Q4

REPORT INFORMATION
  Report Type: Spontaneous
  Country: US (occurrence: None)
  Receive Date: 20151124
  Receipt Date: 20151124
  Transmission Date: 20160304
  Serious: No
  Sender: FDA-Public Use
  Company Number: None

PATIENT
  Age: 64 Year
  Sex: Female
  Weight: 80.74 kg

DRUGS (12)
  1. OCUVITE EYE HEALTH [Concomitant]
  2. CENTRUM SILVER FOR WOMEN/ 50 PLUS [Concomitant]
  3. RISEDRONATE [Concomitant]
     Active Substance: RISEDRONATE SODIUM
  4. MIRALAX ITSP [Concomitant]
  5. FENOFIBRATE. [Concomitant]
     Active Substance: FENOFIBRATE
  6. DEXILANT [Concomitant]
     Active Substance: DEXLANSOPRAZOLE
  7. OSCAL CALCIUM D3 [Concomitant]
  8. SODIUM [Concomitant]
     Active Substance: SODIUM
  9. LEVOTHYROXINE. [Concomitant]
     Active Substance: LEVOTHYROXINE
  10. SIMVASTATIN. [Suspect]
     Active Substance: SIMVASTATIN
     Indication: BLOOD CHOLESTEROL INCREASED
     Route: 048
     Dates: start: 20141023, end: 20151122
  11. SIMVASTATIN. [Concomitant]
     Active Substance: SIMVASTATIN
  12. EXTRA PAIN RELIEF ASPIRIN [Concomitant]

REACTIONS (8)
  - Skin disorder [None]
  - Hypersensitivity [None]
  - Muscular weakness [None]
  - Fatigue [None]
  - Pruritus [None]
  - Amnesia [None]
  - Skin ulcer [None]
  - Scratch [None]

NARRATIVE: CASE EVENT DATE: 20151023
